FAERS Safety Report 6616106-2 (Version None)
Quarter: 2010Q1

REPORT INFORMATION
  Report Type: 
  Country: None (occurrence: None)
  Receive Date: 20100305
  Receipt Date: 20100225
  Transmission Date: 20100710
  Serious: Yes (Hospitalization)
  Sender: FDA-Public Use
  Company Number: CA-MERCK-1002CAN00095

PATIENT
  Age: 7 Year
  Sex: Female

DRUGS (4)
  1. SINGULAIR [Suspect]
     Indication: ASTHMA
     Route: 048
     Dates: start: 20090101
  2. SINGULAIR [Suspect]
     Route: 048
     Dates: end: 20100201
  3. ALBUTEROL [Concomitant]
     Route: 065
  4. FLUTICASONE PROPIONATE [Concomitant]
     Route: 065

REACTIONS (3)
  - ADENOIDAL DISORDER [None]
  - FOAMING AT MOUTH [None]
  - TONSILLAR DISORDER [None]
